FAERS Safety Report 5196972-0 (Version None)
Quarter: 2006Q4

REPORT INFORMATION
  Report Type: 
  Country: None (occurrence: None)
  Receive Date: 20061227
  Receipt Date: 20061211
  Transmission Date: 20070319
  Serious: Yes (Other)
  Sender: FDA-Public Use
  Company Number: 2006SP008249

PATIENT
  Sex: Male

DRUGS (1)
  1. PEGETRON (PEGINTERFERON ALFA 2B W/ RIBAVIRIN) (PEGLYLATED INTERFERON A [Suspect]
     Indication: HEPATITIS C

REACTIONS (1)
  - HEPATIC CANCER METASTATIC [None]
